FAERS Safety Report 10388482 (Version 3)
Quarter: 2014Q4

REPORT INFORMATION
  Report Type: Report from Study
  Country: US (occurrence: US)
  Receive Date: 20140815
  Receipt Date: 20141030
  Transmission Date: 20150528
  Serious: No
  Sender: FDA-Public Use
  Company Number: US-ALEXION-A201002057

PATIENT

DRUGS (1)
  1. SOLIRIS [Suspect]
     Active Substance: ECULIZUMAB
     Indication: PAROXYSMAL NOCTURNAL HAEMOGLOBINURIA
     Dosage: UNK
     Route: 042

REACTIONS (5)
  - Chest pain [Unknown]
  - Quality of life decreased [Unknown]
  - Inappropriate schedule of drug administration [Unknown]
  - Haemoglobinuria [Unknown]
  - Fatigue [Not Recovered/Not Resolved]
